APPROVED DRUG PRODUCT: ALBENDAZOLE
Active Ingredient: ALBENDAZOLE
Strength: 200MG
Dosage Form/Route: TABLET;ORAL
Application: A211117 | Product #001 | TE Code: AB
Applicant: EDENBRIDGE PHARMACEUTICALS LLC
Approved: May 14, 2019 | RLD: No | RS: No | Type: RX